FAERS Safety Report 5120936-6 (Version None)
Quarter: 2006Q4

REPORT INFORMATION
  Report Type: 
  Country: None (occurrence: None)
  Receive Date: 20061005
  Receipt Date: 20060922
  Transmission Date: 20070319
  Serious: Yes (Hospitalization)
  Sender: FDA-Public Use
  Company Number: AU-ROCHE-464391

PATIENT
  Age: 77 Year
  Sex: Female
  Weight: 58 kg

DRUGS (10)
  1. CAPECITABINE [Suspect]
     Route: 048
     Dates: start: 20060821, end: 20060922
  2. CAPECITABINE [Suspect]
     Route: 048
     Dates: start: 20060925
  3. GEMCITABINE [Suspect]
     Route: 042
     Dates: start: 20060821
  4. PANADOL [Concomitant]
     Dates: start: 20060922
  5. METFORMIN HCL [Concomitant]
     Dates: start: 20060922
  6. MAXOLON [Concomitant]
     Dates: start: 20060922
  7. SIMVASTATIN [Concomitant]
     Dates: start: 20060922
  8. DEXANE [Concomitant]
     Dates: start: 20060922
  9. ATORVASTATIN CALCIUM [Concomitant]
     Dates: start: 20060922
  10. AMOSAN [Concomitant]
     Dates: start: 20060922

REACTIONS (9)
  - ANOREXIA [None]
  - CHILLS [None]
  - DEHYDRATION [None]
  - KLEBSIELLA INFECTION [None]
  - LIVER ABSCESS [None]
  - NAUSEA [None]
  - ORAL CANDIDIASIS [None]
  - PYREXIA [None]
  - RASH [None]
